FAERS Safety Report 17669311 (Version 1)
Quarter: 2020Q2

REPORT INFORMATION
  Report Type: Spontaneous
  Country: US (occurrence: US)
  Receive Date: 20200415
  Receipt Date: 20200415
  Transmission Date: 20200713
  Serious: No
  Sender: FDA-Public Use
  Company Number: US-ALK-ABELLO A/S-2020AA000047

PATIENT

DRUGS (9)
  1. PRE-PEN [Suspect]
     Active Substance: BENZYLPENICILLOYL POLYLYSINE
     Indication: PRODUCT USED FOR UNKNOWN INDICATION
     Dosage: UNK
     Route: 023
     Dates: start: 20200102
  2. STERILE DILUENT FOR ALLERGENIC EXTRACT NOS [Suspect]
     Active Substance: ALBUMIN HUMAN OR GLYCERIN OR PHENOL
     Dosage: UNK
     Route: 003
  3. HISTATROL 1MG/ML (PERCUTANEOUS) [Suspect]
     Active Substance: HISTAMINE PHOSPHATE
     Indication: PRODUCT USED FOR UNKNOWN INDICATION
     Route: 023
  4. HISTATROL 1MG/ML (PERCUTANEOUS) [Suspect]
     Active Substance: HISTAMINE PHOSPHATE
     Dosage: UNK
     Route: 003
  5. PRE-PEN [Suspect]
     Active Substance: BENZYLPENICILLOYL POLYLYSINE
     Dosage: UNK
     Route: 003
  6. PENICILIN G [Concomitant]
     Active Substance: PENICILLIN G
     Route: 023
  7. PENICILIN G [Concomitant]
     Active Substance: PENICILLIN G
     Dosage: UNK
     Route: 003
  8. AMOXICILLIN. [Concomitant]
     Active Substance: AMOXICILLIN
     Indication: ALLERGY TEST
     Route: 048
  9. STERILE DILUENT FOR ALLERGENIC EXTRACT NOS [Suspect]
     Active Substance: ALBUMIN HUMAN OR GLYCERIN OR PHENOL
     Dosage: UNK
     Route: 023

REACTIONS (6)
  - Skin test positive [Unknown]
  - Peripheral swelling [Recovered/Resolved]
  - Feeling hot [Unknown]
  - Delivery [Recovered/Resolved]
  - Administration site erythema [Unknown]
  - Maternal exposure during pregnancy [Recovered/Resolved]

NARRATIVE: CASE EVENT DATE: 20200102
